FAERS Safety Report 10257659 (Version 1)
Quarter: 2014Q2

REPORT INFORMATION
  Report Type: Spontaneous
  Country: GB (occurrence: GB)
  Receive Date: 20140625
  Receipt Date: 20140625
  Transmission Date: 20141212
  Serious: Yes (Hospitalization)
  Sender: FDA-Public Use
  Company Number: GB-BAYER-2014-090344

PATIENT
  Age: 58 Year
  Sex: Female
  Weight: 63 kg

DRUGS (2)
  1. CIPROFLOXACIN [Suspect]
     Dosage: UNK
     Dates: start: 20140529
  2. LEVOTHYROXIN [Concomitant]
     Dosage: UNK
     Dates: start: 20140310

REACTIONS (2)
  - Ataxia [Unknown]
  - Myoclonus [Unknown]
